FAERS Safety Report 4748028-6 (Version None)
Quarter: 2005Q3

REPORT INFORMATION
  Report Type: 
  Country: None (occurrence: None)
  Receive Date: 20050818
  Receipt Date: 20050630
  Transmission Date: 20060218
  Serious: Yes (Hospitalization)
  Sender: FDA-Public Use
  Company Number: 2005SE03830

PATIENT
  Age: 23396 Day
  Sex: Male
  Weight: 78 kg

DRUGS (8)
  1. ROSUVASTATIN [Suspect]
     Indication: CARDIAC FAILURE CONGESTIVE
     Route: 048
     Dates: start: 20031117, end: 20050619
  2. N-3 PUFA CODE NOT BROKEN [Suspect]
     Indication: CARDIAC FAILURE CONGESTIVE
     Dates: start: 20031117, end: 20050619
  3. ASPIRIN [Concomitant]
     Indication: CARDIAC FAILURE
     Route: 048
  4. CARVEDILOL [Concomitant]
     Indication: CARDIAC FAILURE
     Route: 048
  5. FUROSEMIDE [Concomitant]
     Indication: CARDIAC FAILURE
     Route: 048
  6. OMEPRAZOLE [Concomitant]
     Indication: CARDIAC FAILURE
     Route: 048
  7. ENALAPRIL [Concomitant]
     Indication: CARDIAC FAILURE
     Route: 048
  8. SPIRONOLACTONE [Concomitant]
     Indication: CARDIAC FAILURE
     Route: 048
     Dates: end: 20050619

REACTIONS (6)
  - ANAEMIA [None]
  - BLOOD CREATININE INCREASED [None]
  - CALCULUS BLADDER [None]
  - HAEMOGLOBIN DECREASED [None]
  - HYDRONEPHROSIS [None]
  - URINARY RETENTION [None]
